FAERS Safety Report 8162909-5 (Version None)
Quarter: 2012Q1

REPORT INFORMATION
  Report Type: 
  Country: None (occurrence: None)
  Receive Date: 20120224
  Receipt Date: 20120221
  Transmission Date: 20120608
  Serious: Yes (Other)
  Sender: FDA-Public Use
  Company Number: US-PFIZER INC-2011317498

PATIENT
  Sex: Female
  Weight: 63.5 kg

DRUGS (4)
  1. LYRICA [Suspect]
     Indication: NEURALGIA
     Dosage: 75 MG, 3X/DAY
     Route: 048
     Dates: start: 20111210, end: 20111212
  2. ESTRADIOL [Concomitant]
     Dosage: 3 MG
  3. LYRICA [Suspect]
     Indication: PAIN MANAGEMENT
  4. LEXAPRO [Concomitant]
     Dosage: UNK

REACTIONS (4)
  - OEDEMA PERIPHERAL [None]
  - DIZZINESS [None]
  - FEELING ABNORMAL [None]
  - SWOLLEN TONGUE [None]
